FAERS Safety Report 13873717 (Version 1)
Quarter: 2017Q3

REPORT INFORMATION
  Report Type: Report from Study
  Country: AR (occurrence: AR)
  Receive Date: 20170816
  Receipt Date: 20170816
  Transmission Date: 20171127
  Serious: Yes (Death, Hospitalization)
  Sender: FDA-Public Use
  Company Number: AR-ASTRAZENECA-2017SE80185

PATIENT

DRUGS (1)
  1. TAGRISSO [Suspect]
     Active Substance: OSIMERTINIB
     Indication: LUNG NEOPLASM MALIGNANT
     Route: 048

REACTIONS (7)
  - Death [Fatal]
  - Diarrhoea [Unknown]
  - General physical health deterioration [Unknown]
  - Metastases to central nervous system [Unknown]
  - Facial paresis [Unknown]
  - Paresis [Unknown]
  - Enterocutaneous fistula [Unknown]

NARRATIVE: CASE EVENT DATE: 20170618
